FAERS Safety Report 12228392 (Version 1)
Quarter: 2016Q1

REPORT INFORMATION
  Report Type: Spontaneous
  Country: US (occurrence: None)
  Receive Date: 20160330
  Receipt Date: 20160330
  Transmission Date: 20160526
  Serious: Yes (Other)
  Sender: FDA-Public Use
  Company Number: None

PATIENT
  Age: 87 Year
  Sex: Male
  Weight: 72.58 kg

DRUGS (6)
  1. LEVOFLOXICAM LEVOFLOXACIN ZYDUS [Suspect]
     Active Substance: LEVOFLOXACIN
     Indication: RESPIRATORY DISORDER
     Dosage: 7 PILLS 1 DAILY BY MOUTH
     Route: 048
     Dates: start: 20160216, end: 20160222
  2. OCUVITE [Concomitant]
     Active Substance: VITAMINS
  3. LOW DOSE ASPIRIN [Concomitant]
     Active Substance: ASPIRIN
  4. TAMSULOSIN [Concomitant]
     Active Substance: TAMSULOSIN
  5. CENTRUM SILVER [Concomitant]
     Active Substance: MINERALS\VITAMINS
  6. CALTRATE [Concomitant]
     Active Substance: CALCIUM CARBONATE

REACTIONS (4)
  - Gait disturbance [None]
  - Tendon pain [None]
  - Arthralgia [None]
  - Musculoskeletal pain [None]

NARRATIVE: CASE EVENT DATE: 20160222
